FAERS Safety Report 8947045 (Version 1)
Quarter: 2012Q4

REPORT INFORMATION
  Report Type: 
  Country: US (occurrence: US)
  Receive Date: 20121205
  Receipt Date: 20121205
  Transmission Date: 20130627
  Serious: No
  Sender: FDA-Public Use
  Company Number: US-ASTRAZENECA-2012SE54482

PATIENT
  Age: 55 Year
  Sex: Female
  Weight: 104.3 kg

DRUGS (13)
  1. NEXIUM [Suspect]
     Indication: ULCER
     Route: 048
     Dates: start: 201206
  2. OMEPRAZOLE [Suspect]
     Indication: ULCER
     Route: 048
     Dates: start: 201202, end: 201207
  3. NITROGLYCERINE [Concomitant]
     Indication: CARDIAC DISORDER
  4. CARISOPRODOL [Concomitant]
     Indication: SCIATIC NERVE NEUROPATHY
  5. HYDROCODONE [Concomitant]
     Indication: PAIN
  6. PAXIL [Concomitant]
     Indication: DEPRESSION
  7. TRAZADONE [Concomitant]
     Indication: ANXIETY
  8. TRAZADONE [Concomitant]
     Indication: INSOMNIA
  9. TRAZADONE [Concomitant]
     Indication: DEPRESSION
  10. DILAUDID [Concomitant]
     Indication: PAIN
  11. XANAX [Concomitant]
     Indication: ANXIETY
  12. GLUCOSAMINE CHONDROITIN WITH MSN [Concomitant]
     Indication: RHEUMATOID ARTHRITIS
  13. MYLANTA [Concomitant]

REACTIONS (5)
  - Sleep disorder due to general medical condition, insomnia type [Unknown]
  - Abdominal discomfort [Unknown]
  - Off label use [Unknown]
  - Drug dose omission [Unknown]
  - Drug ineffective [Unknown]
